FAERS Safety Report 7683144-0 (Version None)
Quarter: 2011Q3

REPORT INFORMATION
  Report Type: 
  Country: None (occurrence: None)
  Receive Date: 20110812
  Receipt Date: 20110812
  Transmission Date: 20111222
  Serious: Yes (Other)
  Sender: FDA-Public Use
  Company Number: None

PATIENT
  Sex: Male
  Weight: 110 kg

DRUGS (5)
  1. CLINORIL [Concomitant]
  2. LOVAZA [Concomitant]
  3. PRAVASTATIN [Concomitant]
  4. HYDROCHLOROTHIAZIDE [Suspect]
     Indication: HYPERTENSION
     Dosage: 25 MG DAILY PO
     Route: 048
     Dates: start: 19801002, end: 20110727
  5. PROPRANOLOL [Concomitant]

REACTIONS (2)
  - TINNITUS [None]
  - HYPOACUSIS [None]
